FAERS Safety Report 5098746-8 (Version None)
Quarter: 2006Q3

REPORT INFORMATION
  Report Type: 
  Country: None (occurrence: None)
  Receive Date: 20060907
  Receipt Date: 20060906
  Transmission Date: 20061208
  Serious: Yes (Disabling, Other)
  Sender: FDA-Public Use
  Company Number: US-GLAXOSMITHKLINE-A0619251A

PATIENT
  Age: 70 Year
  Sex: Female

DRUGS (4)
  1. AVANDIA [Suspect]
     Indication: DIABETES MELLITUS NON-INSULIN-DEPENDENT
     Dosage: 8MG PER DAY
     Route: 048
     Dates: start: 20060301
  2. CADUET [Concomitant]
  3. GLUCOVANCE [Concomitant]
  4. DIOVAN HCT [Concomitant]

REACTIONS (3)
  - HAEMATOCRIT DECREASED [None]
  - HIP SURGERY [None]
  - OPERATIVE HAEMORRHAGE [None]
